FAERS Safety Report 10355341 (Version 1)
Quarter: 2014Q3

REPORT INFORMATION
  Report Type: Spontaneous
  Country: US (occurrence: US)
  Receive Date: 20140731
  Receipt Date: 20140731
  Transmission Date: 20150326
  Serious: Yes (Other)
  Sender: FDA-Public Use
  Company Number: US-PFIZER INC-2014212025

PATIENT
  Age: 56 Year
  Sex: Female
  Weight: 113.38 kg

DRUGS (1)
  1. ARTHROTEC [Suspect]
     Active Substance: DICLOFENAC SODIUM\MISOPROSTOL
     Indication: OSTEOARTHRITIS
     Dosage: 175 MG, DAILY
     Dates: end: 201406

REACTIONS (5)
  - Cellulitis [Recovered/Resolved]
  - Limb discomfort [Recovered/Resolved]
  - Oedema peripheral [Recovered/Resolved]
  - Poor peripheral circulation [Recovered/Resolved]
  - Musculoskeletal discomfort [Recovered/Resolved]

NARRATIVE: CASE EVENT DATE: 201406
